FAERS Safety Report 15074431 (Version 1)
Quarter: 2018Q2

REPORT INFORMATION
  Report Type: Spontaneous
  Country: PL (occurrence: PL)
  Receive Date: 20180627
  Receipt Date: 20180627
  Transmission Date: 20180711
  Serious: Yes (Other)
  Sender: FDA-Public Use
  Company Number: PHHY2018PL029028

PATIENT
  Age: 46 Year
  Sex: Female

DRUGS (2)
  1. HYDROXYCARBAMIDE [Concomitant]
     Active Substance: HYDROXYUREA
     Indication: PRODUCT USED FOR UNKNOWN INDICATION
     Route: 065
  2. NILOTINIB [Suspect]
     Active Substance: NILOTINIB
     Indication: CHRONIC MYELOID LEUKAEMIA
     Dosage: 400 MG, BID
     Route: 065
     Dates: start: 201005

REACTIONS (9)
  - Hypertension [Unknown]
  - Brain oedema [Unknown]
  - Blood cholesterol increased [Unknown]
  - Blood glucose increased [Unknown]
  - Peripheral artery thrombosis [Unknown]
  - Blood triglycerides increased [Unknown]
  - Hypothyroidism [Unknown]
  - Pancreatic enzymes increased [Unknown]
  - Headache [Unknown]

NARRATIVE: CASE EVENT DATE: 201008
